FAERS Safety Report 9778664 (Version 2)
Quarter: 2014Q2

REPORT INFORMATION
  Report Type: Report from Study
  Country: CN (occurrence: CN)
  Receive Date: 20131223
  Receipt Date: 20140516
  Transmission Date: 20141212
  Serious: Yes (Hospitalization)
  Sender: FDA-Public Use
  Company Number: CN-JNJFOC-20131211650

PATIENT
  Age: 35 Year
  Sex: Male
  Weight: 66 kg

DRUGS (2)
  1. PLACEBO [Suspect]
     Indication: COLITIS ULCERATIVE
     Route: 042
  2. MESALAZINE [Concomitant]
     Route: 065

REACTIONS (1)
  - Thyroid neoplasm [Recovered/Resolved]
